FAERS Safety Report 14656732 (Version 1)
Quarter: 2018Q1

REPORT INFORMATION
  Report Type: Spontaneous
  Country: US (occurrence: US)
  Receive Date: 20180319
  Receipt Date: 20180319
  Transmission Date: 20180509
  Serious: No
  Sender: FDA-Public Use
  Company Number: US-SA-2017SA038908

PATIENT
  Age: 65 Year
  Sex: Male
  Weight: 145 kg

DRUGS (3)
  1. NASACORT ALLERGY 24HR [Suspect]
     Active Substance: TRIAMCINOLONE ACETONIDE
     Indication: MULTIPLE ALLERGIES
     Dosage: 1-2 SPRAY(PUFFS) IN EACH NOSTRIL.
     Route: 045
     Dates: start: 2016, end: 201703
  2. LISINOPRIL. [Concomitant]
     Active Substance: LISINOPRIL
     Indication: HYPERTENSION
     Route: 065
     Dates: start: 2015
  3. NASACORT ALLERGY 24HR [Suspect]
     Active Substance: TRIAMCINOLONE ACETONIDE
     Indication: NASAL CONGESTION
     Dosage: 1-2 SPRAY(PUFFS) IN EACH NOSTRIL.
     Route: 045
     Dates: start: 2016, end: 201703

REACTIONS (2)
  - Drug effect incomplete [Unknown]
  - Nasal congestion [Not Recovered/Not Resolved]
